FAERS Safety Report 8363732-9 (Version None)
Quarter: 2012Q2

REPORT INFORMATION
  Report Type: 
  Country: None (occurrence: None)
  Receive Date: 20120514
  Receipt Date: 20120430
  Transmission Date: 20120825
  Serious: Yes (Other)
  Sender: FDA-Public Use
  Company Number: 2011MA004334

PATIENT
  Sex: Male
  Weight: 79.3795 kg

DRUGS (26)
  1. TRICOR [Concomitant]
  2. COZAAR [Concomitant]
  3. PANGESTYME [Concomitant]
  4. PROTONIX [Concomitant]
  5. AMBIEN [Concomitant]
  6. BENICAR [Concomitant]
  7. PLAVIX [Concomitant]
  8. LIPITOR [Concomitant]
  9. ZETIA [Concomitant]
  10. ASPIRIN [Concomitant]
  11. MULTI-VITAMINS [Concomitant]
  12. CIPROFLOXACIN HCL [Concomitant]
  13. ALTACE [Concomitant]
  14. SPIRONOLACTONE [Concomitant]
  15. GEMFIBROZIL [Concomitant]
  16. PERCOCET [Concomitant]
  17. INSEPRA [Concomitant]
  18. CEPHALEXIN [Concomitant]
  19. NITROGLYCERIN [Concomitant]
  20. METOCLOPRAMIDE [Suspect]
     Indication: IMPAIRED GASTRIC EMPTYING
     Dosage: 10 MG;TID;PO
     Route: 048
     Dates: start: 20030619, end: 20080101
  21. METOCLOPRAMIDE [Suspect]
     Indication: GASTROINTESTINAL DISORDER
     Dosage: 10 MG;TID;PO
     Route: 048
     Dates: start: 20030619, end: 20080101
  22. METOCLOPRAMIDE [Suspect]
     Indication: GASTROOESOPHAGEAL REFLUX DISEASE
     Dosage: 10 MG;TID;PO
     Route: 048
     Dates: start: 20030619, end: 20080101
  23. COREG [Concomitant]
  24. DIOVAN [Concomitant]
  25. LESCOL [Concomitant]
  26. CHOLESTYRAMINE [Concomitant]

REACTIONS (22)
  - GASTRIC DISORDER [None]
  - ISCHAEMIC CARDIOMYOPATHY [None]
  - DYSKINESIA [None]
  - GRIMACING [None]
  - ECONOMIC PROBLEM [None]
  - EXTRAPYRAMIDAL DISORDER [None]
  - MOVEMENT DISORDER [None]
  - CORONARY ARTERY THROMBOSIS [None]
  - LEFT VENTRICULAR HYPERTROPHY [None]
  - MUSCLE RIGIDITY [None]
  - DYSARTHRIA [None]
  - CORONARY ARTERY DISEASE [None]
  - INFLAMMATION [None]
  - IMPAIRED GASTRIC EMPTYING [None]
  - HYPERTENSION [None]
  - MEIGE'S SYNDROME [None]
  - EMOTIONAL DISORDER [None]
  - GASTROOESOPHAGEAL REFLUX DISEASE [None]
  - SPLEEN DISORDER [None]
  - CORONARY ARTERY OCCLUSION [None]
  - MUSCLE TWITCHING [None]
  - COLITIS [None]
